FAERS Safety Report 9315464 (Version 5)
Quarter: 2013Q3

REPORT INFORMATION
  Report Type: Spontaneous
  Country: SE (occurrence: SE)
  Receive Date: 20130529
  Receipt Date: 20130926
  Transmission Date: 20140515
  Serious: Yes (Life-Threatening, Hospitalization)
  Sender: FDA-Public Use
  Company Number: SE-ROCHE-1228917

PATIENT
  Age: 72 Year
  Sex: Female

DRUGS (8)
  1. ROACTEMRA [Suspect]
     Indication: RHEUMATOID ARTHRITIS
     Route: 042
     Dates: start: 20130312, end: 20130409
  2. OMEPRAZOL [Concomitant]
  3. TRAMADOL [Concomitant]
  4. CALCICHEW D3 [Concomitant]
  5. ISOPTIN [Concomitant]
  6. FURIX [Concomitant]
  7. PREDNISOLON [Concomitant]
  8. ALENDRONAT [Concomitant]

REACTIONS (5)
  - C-reactive protein increased [Not Recovered/Not Resolved]
  - Pneumonia [Not Recovered/Not Resolved]
  - Pulmonary fibrosis [Not Recovered/Not Resolved]
  - Pneumothorax [Not Recovered/Not Resolved]
  - Dyspnoea [Not Recovered/Not Resolved]
